FAERS Safety Report 7110428-7 (Version None)
Quarter: 2010Q4

REPORT INFORMATION
  Report Type: 
  Country: None (occurrence: None)
  Receive Date: 20101118
  Receipt Date: 20101110
  Transmission Date: 20110411
  Serious: Yes (Other)
  Sender: FDA-Public Use
  Company Number: FR-BAXTER-2010BH027916

PATIENT
  Age: 29 Year

DRUGS (2)
  1. GAMMAGARD LIQUID [Suspect]
     Indication: PRODUCT USED FOR UNKNOWN INDICATION
     Route: 042
     Dates: start: 20101108, end: 20101109
  2. GAMMAGARD LIQUID [Suspect]
     Route: 065

REACTIONS (1)
  - CONVULSION [None]
